FAERS Safety Report 13774397 (Version 1)
Quarter: 2017Q3

REPORT INFORMATION
  Report Type: Spontaneous
  Country: US (occurrence: US)
  Receive Date: 20170720
  Receipt Date: 20170720
  Transmission Date: 20171127
  Serious: Yes (Other)
  Sender: FDA-Public Use
  Company Number: None

PATIENT
  Age: 33 Year
  Sex: Female
  Weight: 76.5 kg

DRUGS (3)
  1. TRAMADOL. [Concomitant]
     Active Substance: TRAMADOL
  2. CYCLOBENAZPRINE [Concomitant]
     Active Substance: CYCLOBENZAPRINE
  3. GABAPENTIN. [Suspect]
     Active Substance: GABAPENTIN
     Indication: NEURALGIA
     Dosage: ?          OTHER STRENGTH:MG;QUANTITY:180 CAPSULE(S);?
     Route: 048
     Dates: start: 20170207, end: 20170711

REACTIONS (1)
  - Hypertonic bladder [None]

NARRATIVE: CASE EVENT DATE: 20170603
